FAERS Safety Report 4320058-8 (Version None)
Quarter: 2004Q1

REPORT INFORMATION
  Report Type: 
  Country: None (occurrence: None)
  Receive Date: 20040315
  Receipt Date: 20040115
  Transmission Date: 20041129
  Serious: No
  Sender: FDA-Public Use
  Company Number: 2004194795US

PATIENT
  Age: 40 Year
  Sex: Female

DRUGS (1)
  1. BEXTRA [Suspect]
     Indication: BACK PAIN
     Dosage: 10 MG
     Dates: start: 20040102, end: 20040115

REACTIONS (3)
  - DRY MOUTH [None]
  - FORMICATION [None]
  - PRURITUS [None]
